FAERS Safety Report 8143674-4 (Version None)
Quarter: 2012Q1

REPORT INFORMATION
  Report Type: 
  Country: None (occurrence: None)
  Receive Date: 20120103
  Receipt Date: 20110920
  Transmission Date: 20120608
  Serious: No
  Sender: FDA-Public Use
  Company Number: AE-2011-001698

PATIENT
  Age: 53 Year
  Sex: Female
  Weight: 74.8435 kg

DRUGS (3)
  1. PEGASYS [Concomitant]
  2. INCIVEK [Suspect]
     Dosage: 2250 MG (750 MG, 3 IN 1 D)
     Dates: start: 20110920
  3. RIBASPHERE (RIBAVARIN) [Concomitant]

REACTIONS (6)
  - FEELING COLD [None]
  - THROAT IRRITATION [None]
  - DYSPEPSIA [None]
  - HEADACHE [None]
  - EAR DISCOMFORT [None]
  - CHEST PAIN [None]
